FAERS Safety Report 15066018 (Version 1)
Quarter: 2018Q2

REPORT INFORMATION
  Report Type: Spontaneous
  Country: US (occurrence: US)
  Receive Date: 20180605
  Receipt Date: 20180605
  Transmission Date: 20180711
  Serious: Yes (Hospitalization, Disabling)
  Sender: FDA-Public Use
  Company Number: None

PATIENT
  Age: 65 Year
  Sex: Male
  Weight: 133.2 kg

DRUGS (1)
  1. BUMEX [Suspect]
     Active Substance: BUMETANIDE
     Indication: FLUID RETENTION
     Route: 048
     Dates: start: 20170705, end: 20180426

REACTIONS (6)
  - Penile haemorrhage [None]
  - Confusional state [None]
  - Epistaxis [None]
  - Amnesia [None]
  - Pruritus [None]
  - Skin ulcer [None]

NARRATIVE: CASE EVENT DATE: 20180307
